FAERS Safety Report 9045801 (Version 1)
Quarter: 2013Q1

REPORT INFORMATION
  Report Type: Report from Study
  Country: US (occurrence: US)
  Receive Date: 20130201
  Receipt Date: 20130201
  Transmission Date: 20140127
  Serious: No
  Sender: FDA-Public Use
  Company Number: US-ABBOTT-12P-163-0995037-00

PATIENT
  Age: 25 Year
  Sex: Male

DRUGS (6)
  1. HUMIRA [Suspect]
     Indication: COLITIS ULCERATIVE
     Dosage: LOADING DOSE
     Dates: start: 20121011, end: 20121011
  2. HUMIRA [Suspect]
  3. AMBIEN [Concomitant]
     Indication: INSOMNIA
     Dates: start: 20121106
  4. LIALDA [Concomitant]
     Indication: PRODUCT USED FOR UNKNOWN INDICATION
  5. ATIVAN [Concomitant]
     Indication: PANIC ATTACK
  6. SUBOXONE [Concomitant]
     Indication: PAIN

REACTIONS (8)
  - Somnolence [Not Recovered/Not Resolved]
  - Flank pain [Not Recovered/Not Resolved]
  - Bone pain [Not Recovered/Not Resolved]
  - Asthenia [Not Recovered/Not Resolved]
  - Oropharyngeal pain [Not Recovered/Not Resolved]
  - Depression [Unknown]
  - Fatigue [Recovered/Resolved]
  - Malaise [Recovered/Resolved]
